FAERS Safety Report 25438899 (Version 1)
Quarter: 2025Q2

REPORT INFORMATION
  Report Type: Report from Study
  Country: US (occurrence: US)
  Receive Date: 20250616
  Receipt Date: 20250616
  Transmission Date: 20250716
  Serious: Yes (Other)
  Sender: TAIHO ONCOLOGY INC
  Company Number: US-TAIHOP-2025-006244

PATIENT
  Sex: Male

DRUGS (2)
  1. INQOVI [Suspect]
     Active Substance: CEDAZURIDINE\DECITABINE
     Indication: Chronic myelomonocytic leukaemia
     Dosage: DECITABINE 35 MG + CEDAZURIDINE 100 MG; CYCLE UNKNOWN
     Route: 048
     Dates: start: 202406
  2. INQOVI [Suspect]
     Active Substance: CEDAZURIDINE\DECITABINE
     Indication: Myelodysplastic syndrome

REACTIONS (2)
  - Cytopenia [Unknown]
  - Inappropriate schedule of product administration [Unknown]
